FAERS Safety Report 9366230 (Version 2)
Quarter: 2013Q3

REPORT INFORMATION
  Report Type: Spontaneous
  Country: DE (occurrence: DE)
  Receive Date: 20130625
  Receipt Date: 20130709
  Transmission Date: 20140515
  Serious: Yes (Other)
  Sender: FDA-Public Use
  Company Number: DE-JNJFOC-20130614169

PATIENT
  Age: 78 Year
  Sex: Male
  Weight: 84 kg

DRUGS (11)
  1. IBUPROFEN [Suspect]
     Indication: NEURALGIA
     Dosage: 800 UNITS UNSPECIFIED
     Route: 065
     Dates: start: 2007, end: 2013
  2. ALLOPURINOL [Suspect]
     Indication: PRODUCT USED FOR UNKNOWN INDICATION
     Route: 065
     Dates: start: 2003, end: 2012
  3. UROXATRAL [Suspect]
     Indication: PROSTATIC ADENOMA
     Route: 065
     Dates: start: 2003, end: 2013
  4. CO-DIOVAN [Suspect]
     Indication: HYPERTENSION
     Route: 065
     Dates: start: 2003, end: 2013
  5. TAPENTADOL [Concomitant]
     Indication: NEURALGIA
     Dosage: 50 UNIT UNSPECIFIED
     Dates: start: 2009, end: 2012
  6. JANUMET [Concomitant]
     Indication: TYPE 2 DIABETES MELLITUS
     Dosage: 50/1000 UNIT UNSPECIFIED
     Dates: start: 2003, end: 2013
  7. METFORMIN [Concomitant]
     Indication: TYPE 2 DIABETES MELLITUS
     Dosage: 1000 UNIT UNSPECIFIED
     Dates: start: 2003, end: 2013
  8. DOXYCYCLINE [Concomitant]
     Indication: INFECTION
     Dosage: 100/200 UNSPECIFIED UNITS
     Dates: start: 2011, end: 2012
  9. ATENOLOL [Concomitant]
     Indication: HYPERTENSION
     Dates: start: 2003, end: 2013
  10. ETORICOXIB [Concomitant]
     Indication: NEURALGIA
     Dosage: ARCOXIA 120
     Route: 065
     Dates: start: 2011
  11. TRAMADOL HYDROCHLORIDE [Concomitant]
     Indication: PROCEDURAL PAIN
     Dosage: TRAMADOL LONG 100
     Route: 065
     Dates: start: 2009, end: 2011

REACTIONS (3)
  - Renal impairment [Unknown]
  - Pancytopenia [Unknown]
  - Anaemia [Unknown]
